FAERS Safety Report 6194888-4 (Version None)
Quarter: 2009Q2

REPORT INFORMATION
  Report Type: 
  Country: None (occurrence: None)
  Receive Date: 20090515
  Receipt Date: 20090515
  Transmission Date: 20091009
  Serious: Yes (Other)
  Sender: FDA-Public Use
  Company Number: None

PATIENT
  Age: 4 Year
  Sex: Female
  Weight: 14.5151 kg

DRUGS (1)
  1. SINGULAIR [Suspect]
     Indication: ASTHMA
     Dosage: 4 MG ONCE A NIGHT
     Dates: start: 20070101

REACTIONS (5)
  - AGGRESSION [None]
  - MIDDLE INSOMNIA [None]
  - MOOD ALTERED [None]
  - MOOD SWINGS [None]
  - SCREAMING [None]
